FAERS Safety Report 10239600 (Version 1)
Quarter: 2014Q2

REPORT INFORMATION
  Report Type: Spontaneous
  Country: GB (occurrence: None)
  Receive Date: 20140612
  Receipt Date: 20140612
  Transmission Date: 20141212
  Serious: Yes (Hospitalization)
  Sender: FDA-Public Use
  Company Number: AUR-APL-2014-06277

PATIENT
  Sex: Male

DRUGS (4)
  1. FINASTERIDE 5MG (FINASTERIDE) UNKNOWN, 5MG [Suspect]
     Indication: PRODUCT USED FOR UNKNOWN INDICATION
     Dosage: 5 MG, ONCE A DAY, ORAL
     Route: 048
  2. BISOPROLOL (BISOPROLOL) [Concomitant]
  3. SIMVASTATIN (SIMVASTATIN) [Concomitant]
  4. TAMSULOSIN (TAMSULOSIN) [Concomitant]

REACTIONS (2)
  - Swelling face [None]
  - Peripheral swelling [None]
